FAERS Safety Report 15931635 (Version 2)
Quarter: 2019Q1

REPORT INFORMATION
  Report Type: Spontaneous
  Country: US (occurrence: US)
  Receive Date: 20190207
  Receipt Date: 20190303
  Transmission Date: 20190417
  Serious: No
  Sender: FDA-Public Use
  Company Number: US-JNJFOC-20190123626

PATIENT
  Sex: Female

DRUGS (4)
  1. ZYRTEC [Suspect]
     Active Substance: CETIRIZINE HYDROCHLORIDE
     Indication: PERIORBITAL SWELLING
     Route: 048
  2. ZYRTEC [Suspect]
     Active Substance: CETIRIZINE HYDROCHLORIDE
     Indication: HYPERSENSITIVITY
     Route: 048
  3. NEUTROGENA OIL-FREE ACNE WASH PINK GRAPEFRUIT FOAMING SCRUB [Concomitant]
     Active Substance: SALICYLIC ACID
     Indication: PRODUCT USED FOR UNKNOWN INDICATION
     Route: 061
  4. ZYRTEC [Suspect]
     Active Substance: CETIRIZINE HYDROCHLORIDE
     Indication: SWELLING FACE
     Route: 048

REACTIONS (9)
  - Therapeutic response unexpected [Unknown]
  - Pruritus [Recovering/Resolving]
  - Rash macular [Recovering/Resolving]
  - Skin tightness [Recovering/Resolving]
  - Off label use [Unknown]
  - Overdose [Unknown]
  - Skin irritation [Recovering/Resolving]
  - Erythema [Recovering/Resolving]
  - Product use in unapproved indication [Unknown]
